FAERS Safety Report 5794521-7 (Version None)
Quarter: 2008Q2

REPORT INFORMATION
  Report Type: 
  Country: None (occurrence: None)
  Receive Date: 20080626
  Receipt Date: 20080612
  Transmission Date: 20081010
  Serious: Yes (Hospitalization)
  Sender: FDA-Public Use
  Company Number: FR-1166375

PATIENT
  Age: 33 Year
  Sex: Female

DRUGS (2)
  1. TOBREX [Suspect]
     Indication: CONJUNCTIVITIS
     Dosage: OPHTHALMIC
     Route: 047
     Dates: start: 20080309, end: 20080317
  2. CEFPODOXIME PROXETIL [Concomitant]

REACTIONS (4)
  - DYSPHAGIA [None]
  - DYSPNOEA [None]
  - FACE OEDEMA [None]
  - MOUTH ULCERATION [None]
